FAERS Safety Report 13318535 (Version 1)
Quarter: 2017Q1

REPORT INFORMATION
  Report Type: Spontaneous
  Country: US (occurrence: US)
  Receive Date: 20170309
  Receipt Date: 20170309
  Transmission Date: 20170428
  Serious: Yes (Hospitalization)
  Sender: FDA-Public Use
  Company Number: None

PATIENT
  Age: 67 Year
  Sex: Male
  Weight: 47.78 kg

DRUGS (23)
  1. DOCUSATE SODIUM. [Concomitant]
     Active Substance: DOCUSATE SODIUM
  2. OXYCODONE HYDROCHLORIDE. [Concomitant]
     Active Substance: OXYCODONE HYDROCHLORIDE
  3. BENAZEPRIL [Concomitant]
     Active Substance: BENAZEPRIL HYDROCHLORIDE
  4. SPIRONOLACTONE. [Concomitant]
     Active Substance: SPIRONOLACTONE
  5. NAPROXEN. [Concomitant]
     Active Substance: NAPROXEN
  6. HARVONI [Suspect]
     Active Substance: LEDIPASVIR\SOFOSBUVIR
     Dosage: 90/400 MG 1X DAILY ORAL
     Route: 048
     Dates: start: 20161110, end: 20170202
  7. DOXAZOSIN MESYLATE. [Concomitant]
     Active Substance: DOXAZOSIN MESYLATE
  8. MIRTAZAPINE. [Concomitant]
     Active Substance: MIRTAZAPINE
  9. LASIX [Concomitant]
     Active Substance: FUROSEMIDE
  10. CARISOPRODOL. [Concomitant]
     Active Substance: CARISOPRODOL
  11. SILVADENE [Concomitant]
     Active Substance: SILVER SULFADIAZINE
  12. STOOL SOFTENER (DOCUSATE) [Concomitant]
     Active Substance: DOCUSATE
  13. NICODERM CQ [Concomitant]
     Active Substance: NICOTINE
  14. ATENOLOL. [Concomitant]
     Active Substance: ATENOLOL
  15. GABAPENTIN. [Concomitant]
     Active Substance: GABAPENTIN
  16. ASPIRIN. [Concomitant]
     Active Substance: ASPIRIN
  17. IRON [Concomitant]
     Active Substance: IRON
  18. NALOXONE [Concomitant]
     Active Substance: NALOXONE
  19. ALBUTEROL SULFATE. [Concomitant]
     Active Substance: ALBUTEROL SULFATE
  20. PULMICORT FLEXHALER [Concomitant]
     Active Substance: BUDESONIDE
  21. DULOXETINE. [Concomitant]
     Active Substance: DULOXETINE
  22. TOPIRAMATE. [Concomitant]
     Active Substance: TOPIRAMATE
  23. PROAIR HFA [Concomitant]
     Active Substance: ALBUTEROL SULFATE

REACTIONS (1)
  - Cellulitis [None]

NARRATIVE: CASE EVENT DATE: 20170110
